FAERS Safety Report 21908014 (Version 1)
Quarter: 2023Q1

REPORT INFORMATION
  Report Type: Spontaneous
  Country: US (occurrence: None)
  Receive Date: 20230124
  Receipt Date: 20230124
  Transmission Date: 20230418
  Serious: No
  Sender: FDA-Public Use
  Company Number: None

PATIENT
  Sex: Male
  Weight: 68.04 kg

DRUGS (25)
  1. DAURISMO [Suspect]
     Active Substance: GLASDEGIB
     Indication: Plasma cell myeloma
     Dosage: FREQUENCY : DAILY;?
     Route: 048
  2. AMLODIPINE [Concomitant]
     Active Substance: AMLODIPINE BESYLATE
  3. DICYCLOMINE [Concomitant]
     Active Substance: DICYCLOMINE HYDROCHLORIDE
  4. DIPHENHYDRAMINE [Concomitant]
     Active Substance: DIPHENHYDRAMINE
  5. DOXYCYCLINE [Concomitant]
     Active Substance: DOXYCYCLINE
  6. FUROSEMIDE [Concomitant]
     Active Substance: FUROSEMIDE
  7. GRANISETRON [Concomitant]
     Active Substance: GRANISETRON
  8. ARANESP [Concomitant]
     Active Substance: DARBEPOETIN ALFA
  9. CRESEMBA [Concomitant]
     Active Substance: ISAVUCONAZONIUM SULFATE
  10. CRESTOR [Concomitant]
     Active Substance: ROSUVASTATIN CALCIUM
  11. HYDROCORTISONE [Concomitant]
     Active Substance: HYDROCORTISONE
  12. HYDROMET [Concomitant]
     Active Substance: HOMATROPINE METHYLBROMIDE\HYDROCODONE BITARTRATE
  13. LORAZEPAM [Concomitant]
     Active Substance: LORAZEPAM
  14. Lovofloxacin [Concomitant]
  15. LIDODERM [Concomitant]
     Active Substance: LIDOCAINE
  16. LOPERAMIDE [Concomitant]
     Active Substance: LOPERAMIDE
  17. MORPHINE [Concomitant]
     Active Substance: MORPHINE
  18. VITAMINS [Concomitant]
     Active Substance: VITAMINS
  19. NITROSTAT [Concomitant]
     Active Substance: NITROGLYCERIN
  20. NYVEPRIA [Concomitant]
     Active Substance: PEGFILGRASTIM-APGF
  21. PANTOPRAZOLE [Concomitant]
     Active Substance: PANTOPRAZOLE
  22. PEPCID [Concomitant]
     Active Substance: FAMOTIDINE
  23. SINGULAIR [Concomitant]
     Active Substance: MONTELUKAST SODIUM
  24. VITAMIN D3 [Concomitant]
     Active Substance: CHOLECALCIFEROL
  25. VITAMIN E [Concomitant]
     Active Substance: .ALPHA.-TOCOPHEROL

REACTIONS (1)
  - Hospice care [None]
